FAERS Safety Report 4347304-9 (Version None)
Quarter: 2004Q2

REPORT INFORMATION
  Report Type: 
  Country: None (occurrence: None)
  Receive Date: 20040426
  Receipt Date: 20040426
  Transmission Date: 20050107
  Serious: No
  Sender: FDA-Public Use
  Company Number: None

PATIENT
  Age: 45 Year
  Sex: Female

DRUGS (1)
  1. MIRTAZAPINE [Suspect]
     Dosage: 45 MG 1 HS PO
     Route: 048

REACTIONS (2)
  - INSOMNIA [None]
  - PHARMACEUTICAL PRODUCT COMPLAINT [None]
